FAERS Safety Report 7459008-4 (Version None)
Quarter: 2011Q2

REPORT INFORMATION
  Report Type: 
  Country: None (occurrence: None)
  Receive Date: 20110505
  Receipt Date: 20110426
  Transmission Date: 20111010
  Serious: Yes (Hospitalization, Other)
  Sender: FDA-Public Use
  Company Number: US-BIOGENIDEC-2011BI009660

PATIENT
  Age: 40 Year
  Sex: Female
  Weight: 74 kg

DRUGS (5)
  1. DESVENLAFAXINE [Concomitant]
     Route: 048
     Dates: start: 20101201
  2. DALFAMPRIDINE [Concomitant]
     Route: 048
     Dates: start: 20100710
  3. TYSABRI [Suspect]
     Indication: MULTIPLE SCLEROSIS
     Route: 042
     Dates: start: 20091106
  4. VYVANSE [Concomitant]
     Indication: MULTIPLE SCLEROSIS
  5. CALCIUM PLUS D [Concomitant]

REACTIONS (3)
  - MENINGIOMA [None]
  - BLINDNESS [None]
  - OPTIC NERVE NEOPLASM [None]
